FAERS Safety Report 13225952 (Version 2)
Quarter: 2017Q2

REPORT INFORMATION
  Report Type: Spontaneous
  Country: DE (occurrence: DE)
  Receive Date: 20170213
  Receipt Date: 20170512
  Transmission Date: 20170830
  Serious: Yes (Hospitalization)
  Sender: FDA-Public Use
  Company Number: DE-ELI_LILLY_AND_COMPANY-DE201702002093

PATIENT
  Sex: Female

DRUGS (4)
  1. DOXORUBICIN [Suspect]
     Active Substance: DOXORUBICIN
     Dosage: 60 MG/M2, UNKNOWN
  2. LARTRUVO [Suspect]
     Active Substance: OLARATUMAB
     Indication: SARCOMA
     Dosage: 15 MG/KG, UNK
     Route: 042
  3. DOXORUBICIN [Suspect]
     Active Substance: DOXORUBICIN
     Indication: SARCOMA
     Dosage: 75 MG/M2, UNKNOWN
     Route: 065
     Dates: start: 20170105
  4. LARTRUVO [Suspect]
     Active Substance: OLARATUMAB
     Dosage: 10 UNK, UNK
     Route: 017

REACTIONS (3)
  - Food allergy [Recovered/Resolved]
  - Sepsis [Recovered/Resolved]
  - Pancytopenia [Recovered/Resolved]

NARRATIVE: CASE EVENT DATE: 20170115
